FAERS Safety Report 9900150 (Version 2)
Quarter: 2014Q1

REPORT INFORMATION
  Report Type: Report from Study
  Country: JP (occurrence: JP)
  Receive Date: 20140214
  Receipt Date: 20140214
  Transmission Date: 20141002
  Serious: Yes (Disabling)
  Sender: FDA-Public Use
  Company Number: JP-TAKEDA-TCI2013A04979

PATIENT
  Age: 81 Year
  Sex: Male
  Weight: 47 kg

DRUGS (5)
  1. NESINA TABLETS 25MG [Suspect]
     Indication: TYPE 2 DIABETES MELLITUS
     Dosage: 25 MG, QD
     Route: 048
     Dates: start: 20120519
  2. ACTOS [Concomitant]
     Indication: TYPE 2 DIABETES MELLITUS
     Dosage: 30 MG, 1 DAY
     Route: 048
  3. BENET [Concomitant]
     Dosage: UNK
     Route: 048
  4. SEIBULE [Concomitant]
     Indication: TYPE 2 DIABETES MELLITUS
     Dosage: 225 MG, 1 DAYS
     Route: 048
  5. MEDET [Concomitant]
     Indication: TYPE 2 DIABETES MELLITUS
     Dosage: 250 MG, 1 DAYS
     Route: 048

REACTIONS (1)
  - Parkinson^s disease [Not Recovered/Not Resolved]
